FAERS Safety Report 4969345-0 (Version None)
Quarter: 2006Q2

REPORT INFORMATION
  Report Type: 
  Country: None (occurrence: None)
  Receive Date: 20060405
  Receipt Date: 20060328
  Transmission Date: 20061013
  Serious: Yes (Other)
  Sender: FDA-Public Use
  Company Number: 2006043611

PATIENT
  Sex: Female

DRUGS (26)
  1. NORVASC [Suspect]
     Indication: HYPERTENSION
     Dosage: 5 MG (5 MG, QD INTERVAL: EVERY DAY)
  2. LIPITOR [Suspect]
     Indication: BLOOD CHOLESTEROL INCREASED
     Dosage: 40 MG (40 MG, QD INTERVAL: EVERY DAY)
  3. ZITHROMAX [Suspect]
     Indication: EAR INFECTION
     Dates: start: 20050101, end: 20050101
  4. ZITHROMAX [Suspect]
     Indication: PHARYNGOLARYNGEAL PAIN
     Dates: start: 20050101, end: 20050101
  5. ZITHROMAX [Suspect]
     Indication: PNEUMONIA
     Dates: start: 20050101, end: 20050101
  6. CELEBREX [Suspect]
     Indication: ARTHRITIS
     Dosage: 600 MG (200 MG, TID INTERVAL: EVERY DAY)
  7. ZYRTEC [Suspect]
     Indication: HYPERSENSITIVITY
     Dosage: 10 MG
  8. ZYRTEC [Suspect]
     Indication: SINUSITIS
     Dosage: 10 MG
  9. NEURONTIN [Suspect]
     Indication: FIBROMYALGIA
     Dosage: 1500 MG (TID INTERVAL: EVERY DAY)
  10. PRILOSEC [Concomitant]
  11. XALATAN [Concomitant]
  12. LORATADINE [Concomitant]
  13. ZYVOX [Concomitant]
  14. METHOCARBAMOL [Concomitant]
  15. AMITRIPTYLINE HCL [Concomitant]
  16. CYCLOBENZAPRINE HCL [Concomitant]
  17. DEMULEN (ETHINYLESTRADIOL, ETYNODIOL DIACETATE) [Concomitant]
  18. MOTRIN [Concomitant]
  19. WELLBUTRIN XL [Concomitant]
  20. HYDROCHLOROTHIAZIDE [Concomitant]
  21. FLONASE [Concomitant]
  22. TOPAMAX [Concomitant]
  23. SEROQUEL [Concomitant]
  24. LEXAPRO [Concomitant]
  25. TRAMADOL HCL [Concomitant]
  26. PROPRANOLOL [Concomitant]

REACTIONS (24)
  - ASTHMA [None]
  - BLOOD CHOLESTEROL INCREASED [None]
  - BURGLARY VICTIM [None]
  - CARPAL TUNNEL DECOMPRESSION [None]
  - CATARACT [None]
  - DISEASE RECURRENCE [None]
  - EAR INFECTION [None]
  - FALL [None]
  - FRACTURED COCCYX [None]
  - GINGIVAL ABSCESS [None]
  - GLAUCOMA [None]
  - HYPERSENSITIVITY [None]
  - HYPERTENSION [None]
  - LIGAMENT INJURY [None]
  - LOCAL SWELLING [None]
  - NODULE [None]
  - OVERWEIGHT [None]
  - PAIN [None]
  - PAIN IN EXTREMITY [None]
  - PHARYNGOLARYNGEAL PAIN [None]
  - PNEUMONIA [None]
  - SINUSITIS [None]
  - THYROID DISORDER [None]
  - TOOTH ABSCESS [None]
